FAERS Safety Report 4746082-9 (Version None)
Quarter: 2005Q3

REPORT INFORMATION
  Report Type: 
  Country: None (occurrence: None)
  Receive Date: 20050816
  Receipt Date: 20050809
  Transmission Date: 20060218
  Serious: Yes (Hospitalization)
  Sender: FDA-Public Use
  Company Number: 2005UW11705

PATIENT
  Age: 71 Year
  Sex: Male
  Weight: 72 kg

DRUGS (13)
  1. ATENOLOL [Suspect]
     Indication: HYPERTENSION
     Route: 048
     Dates: start: 19990514, end: 19991115
  2. ATENOLOL [Suspect]
     Route: 048
     Dates: start: 19991116, end: 20021105
  3. ATENOLOL [Suspect]
     Route: 048
     Dates: start: 20021105, end: 20040513
  4. ATENOLOL [Suspect]
     Route: 048
     Dates: start: 20040514, end: 20040527
  5. DOXAZOSIN [Suspect]
     Indication: HYPERTENSION
     Route: 048
     Dates: start: 20010619, end: 20011122
  6. DOXAZOSIN [Suspect]
     Route: 048
     Dates: start: 20011123, end: 20050221
  7. BENDROFLUMETHIAZIDE/POTASSIUM CHLORIDE [Suspect]
     Indication: HYPERTENSION
     Route: 048
     Dates: start: 19991216, end: 20000516
  8. BENDROFLUMETHIAZIDE/POTASSIUM CHLORIDE [Suspect]
     Route: 048
     Dates: start: 20000517, end: 20050221
  9. ATORVASTATIN [Suspect]
     Dates: start: 19990514, end: 19990526
  10. GLUCOBAY [Concomitant]
     Dates: start: 19980819
  11. COZAAR [Concomitant]
     Dates: start: 20020513
  12. AMARYL [Concomitant]
     Dates: start: 20030506
  13. WARFARIN [Concomitant]
     Dates: start: 20040806

REACTIONS (11)
  - ACCIDENTAL OVERDOSE [None]
  - ATRIAL FIBRILLATION [None]
  - CHEST PAIN [None]
  - DIZZINESS [None]
  - DRUG INEFFECTIVE [None]
  - INFECTION [None]
  - MEDICATION ERROR [None]
  - PACEMAKER COMPLICATION [None]
  - POST PROCEDURAL COMPLICATION [None]
  - PYREXIA [None]
  - SYNCOPE [None]
